FAERS Safety Report 7571446-8 (Version None)
Quarter: 2011Q2

REPORT INFORMATION
  Report Type: 
  Country: None (occurrence: None)
  Receive Date: 20110623
  Receipt Date: 20110623
  Transmission Date: 20111010
  Serious: Yes (Hospitalization)
  Sender: FDA-Public Use
  Company Number: None

PATIENT
  Age: 53 Year
  Sex: Female
  Weight: 78.9259 kg

DRUGS (1)
  1. DOCETAXEL (TAXOTERE) [Suspect]
     Indication: BREAST CANCER
     Dosage: 135 MG Q 21 DAYS X 4 IV DRIP
     Route: 041
     Dates: start: 20110519, end: 20110616

REACTIONS (13)
  - HYPOVOLAEMIA [None]
  - HYPOKALAEMIA [None]
  - NAUSEA [None]
  - ASTHENIA [None]
  - RENAL FAILURE ACUTE [None]
  - HYPONATRAEMIA [None]
  - TREATMENT NONCOMPLIANCE [None]
  - VOMITING [None]
  - HYPERGLYCAEMIA [None]
  - FATIGUE [None]
  - HEART RATE INCREASED [None]
  - DEHYDRATION [None]
  - GASTROINTESTINAL HAEMORRHAGE [None]
